FAERS Safety Report 24652946 (Version 1)
Quarter: 2024Q4

REPORT INFORMATION
  Report Type: Spontaneous
  Country: RO (occurrence: RO)
  Receive Date: 20241122
  Receipt Date: 20241122
  Transmission Date: 20250114
  Serious: Yes (Other)
  Sender: ELI LILLY AND COMPANY
  Company Number: RO-BRISTOL-MYERS SQUIBB COMPANY-2024-173969

PATIENT
  Age: 63 Year
  Sex: Male

DRUGS (4)
  1. PEMETREXED [Suspect]
     Active Substance: PEMETREXED
     Indication: Lung adenocarcinoma
     Dosage: 500 MG/M2, UNKNOWN
     Route: 065
     Dates: start: 202308, end: 202312
  2. NIVOLUMAB [Suspect]
     Active Substance: NIVOLUMAB
     Indication: Lung adenocarcinoma
     Dosage: 360 MG, UNKNOWN
     Route: 065
     Dates: start: 202308
  3. IPILIMUMAB [Suspect]
     Active Substance: IPILIMUMAB
     Indication: Lung adenocarcinoma
     Dosage: 1 MG/KG, UNKNOWN
     Route: 065
     Dates: start: 202308
  4. CARBOPLATIN [Suspect]
     Active Substance: CARBOPLATIN
     Indication: Lung adenocarcinoma
     Dosage: UNK UNK, UNKNOWN
     Route: 065
     Dates: start: 202308, end: 202312

REACTIONS (6)
  - Immune-mediated hypothyroidism [Unknown]
  - Immune-mediated adrenal insufficiency [Unknown]
  - Pulmonary embolism [Unknown]
  - Hypochromic anaemia [Unknown]
  - Diarrhoea [Unknown]
  - Vomiting [Unknown]

NARRATIVE: CASE EVENT DATE: 20230801
